FAERS Safety Report 10758671 (Version 1)
Quarter: 2015Q1

REPORT INFORMATION
  Report Type: Spontaneous
  Country: NO (occurrence: NO)
  Receive Date: 20150203
  Receipt Date: 20150203
  Transmission Date: 20150721
  Serious: Yes (Other)
  Sender: FDA-Public Use
  Company Number: NO-WATSON-2015-01528

PATIENT
  Age: 25 Year
  Sex: Female
  Weight: 56 kg

DRUGS (4)
  1. DIPHENHYDRAMINE [Concomitant]
     Active Substance: DIPHENHYDRAMINE
     Indication: VERTIGO
  2. DIPHENHYDRAMINE [Concomitant]
     Active Substance: DIPHENHYDRAMINE
     Indication: GASTROENTERITIS
     Dosage: 25 MG, SINGLE
     Route: 030
  3. METOCLOPRAMIDE (UNKNOWN) [Suspect]
     Active Substance: METOCLOPRAMIDE
     Indication: VERTIGO
     Dosage: 20 MG, TOTAL
     Route: 048
  4. METOCLOPRAMIDE (UNKNOWN) [Suspect]
     Active Substance: METOCLOPRAMIDE
     Indication: GASTROENTERITIS
     Dosage: 10 MG, SINGLE
     Route: 030

REACTIONS (8)
  - Dizziness [Recovered/Resolved]
  - Ocular icterus [Recovered/Resolved]
  - Anxiety [Recovered/Resolved]
  - Yellow skin [Recovered/Resolved]
  - Suicidal ideation [Recovered/Resolved]
  - Extrapyramidal disorder [Recovered/Resolved with Sequelae]
  - Depression [Recovered/Resolved]
  - Abdominal pain [Recovered/Resolved]
